FAERS Safety Report 5031136-2 (Version None)
Quarter: 2006Q2

REPORT INFORMATION
  Report Type: 
  Country: None (occurrence: None)
  Receive Date: 20060621
  Receipt Date: 20050811
  Transmission Date: 20061013
  Serious: Yes (Other)
  Sender: FDA-Public Use
  Company Number: PHEH2005US08928

PATIENT
  Age: 68 Year
  Sex: Female

DRUGS (4)
  1. AREDIA [Suspect]
     Indication: METASTASES TO BONE
     Route: 042
  2. ZOMETA [Suspect]
     Indication: METASTASES TO BONE
     Dosage: UNK, UNK
     Route: 042
     Dates: start: 20030106
  3. TAMOXIFEN [Concomitant]
  4. EFFEXOR /USA/ [Concomitant]
     Dosage: 75 MG, QD

REACTIONS (45)
  - ACTINOMYCOSIS [None]
  - ANAEMIA [None]
  - ARTHRALGIA [None]
  - BACTERIAL INFECTION [None]
  - BODY TEMPERATURE INCREASED [None]
  - BONE DEBRIDEMENT [None]
  - BONE DISORDER [None]
  - BREATH ODOUR [None]
  - CHEST PAIN [None]
  - CHRONIC SINUSITIS [None]
  - CONTUSION [None]
  - DENTAL CARIES [None]
  - DENTURE WEARER [None]
  - DYSPNOEA [None]
  - DYSURIA [None]
  - ERYTHEMA [None]
  - FALL [None]
  - FATIGUE [None]
  - FIBROSIS [None]
  - GASTROINTESTINAL DISORDER [None]
  - GASTROINTESTINAL PAIN [None]
  - GINGIVITIS [None]
  - HAEMANGIOMA [None]
  - HAEMANGIOMA OF LIVER [None]
  - ORAL INFECTION [None]
  - ORAL MUCOSAL EXFOLIATION [None]
  - OSTEOMYELITIS [None]
  - OSTEONECROSIS [None]
  - PAIN [None]
  - PERIODONTAL OPERATION [None]
  - PERIODONTITIS [None]
  - PRIMARY SEQUESTRUM [None]
  - PSEUDOMONAS INFECTION [None]
  - PULMONARY MASS [None]
  - PYREXIA [None]
  - RASH [None]
  - RASH MACULAR [None]
  - RASH MACULO-PAPULAR [None]
  - RASH PRURITIC [None]
  - RESPIRATORY DISORDER [None]
  - SINUS CONGESTION [None]
  - SINUSITIS [None]
  - TOOTH LOSS [None]
  - VAGINAL INFECTION [None]
  - WOUND DEBRIDEMENT [None]
